FAERS Safety Report 22600484 (Version 1)
Quarter: 2023Q2

REPORT INFORMATION
  Report Type: Spontaneous
  Country: US (occurrence: US)
  Receive Date: 20230614
  Receipt Date: 20230614
  Transmission Date: 20230721
  Serious: No
  Sender: FDA-Public Use
  Company Number: US-SA-SAC20230613000485

PATIENT
  Age: 47 Year
  Sex: Female

DRUGS (1)
  1. CERDELGA [Suspect]
     Active Substance: ELIGLUSTAT
     Indication: Gaucher^s disease
     Dosage: 84 MG, TID
     Route: 048
     Dates: start: 202001

REACTIONS (2)
  - Fluid retention [Unknown]
  - Inappropriate schedule of product administration [Unknown]
